FAERS Safety Report 16003758 (Version 1)
Quarter: 2019Q1

REPORT INFORMATION
  Report Type: Spontaneous
  Country: BE (occurrence: BE)
  Receive Date: 20190226
  Receipt Date: 20190226
  Transmission Date: 20190418
  Serious: Yes (Other)
  Sender: FDA-Public Use
  Company Number: BE-BRISTOL-MYERS SQUIBB COMPANY-BMS-2019-015320

PATIENT
  Sex: Male
  Weight: 52 kg

DRUGS (6)
  1. PERAMPANEL [Concomitant]
     Active Substance: PERAMPANEL
     Indication: LAFORA^S MYOCLONIC EPILEPSY
     Dosage: UNK
     Route: 065
  2. METFORMIN HYDROCHLORIDE. [Suspect]
     Active Substance: METFORMIN HYDROCHLORIDE
     Indication: TYPE 2 DIABETES MELLITUS
     Dosage: 500 MG, UNK, DRUG INTERVAL DOSAGE UNIT NUMBER 1 DAY
     Route: 065
  3. METFORMIN HYDROCHLORIDE. [Suspect]
     Active Substance: METFORMIN HYDROCHLORIDE
     Indication: PRODUCT USED FOR UNKNOWN INDICATION
     Dosage: 1.5 G, UNK, DRUG INTERVAL DOSAGE UNIT NUMBER 1 DAY
     Route: 065
  4. SODIUM VALPROATE [Concomitant]
     Active Substance: VALPROATE SODIUM
     Indication: LAFORA^S MYOCLONIC EPILEPSY
     Dosage: UNK
     Route: 065
  5. CLONAZEPAM. [Concomitant]
     Active Substance: CLONAZEPAM
     Indication: LAFORA^S MYOCLONIC EPILEPSY
     Dosage: UNK
     Route: 065
  6. METFORMIN HYDROCHLORIDE. [Suspect]
     Active Substance: METFORMIN HYDROCHLORIDE
     Indication: PRODUCT USED FOR UNKNOWN INDICATION
     Dosage: 500 MG, UNK, DRUG INTERVAL DOSAGE UNIT NUMBER 1 DAY
     Route: 065

REACTIONS (1)
  - Gastrointestinal disorder [Unknown]
